FAERS Safety Report 5215577-6 (Version None)
Quarter: 2007Q1

REPORT INFORMATION
  Report Type: 
  Country: None (occurrence: None)
  Receive Date: 20070117
  Receipt Date: 20070109
  Transmission Date: 20070707
  Serious: Yes (Disabling, Other)
  Sender: FDA-Public Use
  Company Number: 2007AL000115

PATIENT
  Age: 29 Year
  Sex: Male

DRUGS (1)
  1. TRAMADOL HCL [Suspect]
     Indication: PAIN
     Dosage: 100 MG; QID; PO
     Route: 048
     Dates: start: 20060812, end: 20060818

REACTIONS (2)
  - GRAND MAL CONVULSION [None]
  - INCORRECT DOSE ADMINISTERED [None]
